FAERS Safety Report 5897581-8 (Version None)
Quarter: 2008Q3

REPORT INFORMATION
  Report Type: 
  Country: None (occurrence: None)
  Receive Date: 20080925
  Receipt Date: 20080917
  Transmission Date: 20090109
  Serious: Yes (Hospitalization)
  Sender: FDA-Public Use
  Company Number: TR-NOVOPROD-278999

PATIENT
  Sex: Female
  Weight: 56 kg

DRUGS (3)
  1. ACTRAPID HM PENFILL [Suspect]
     Indication: DIABETES MELLITUS
     Dosage: 30 IU, QD
     Route: 058
     Dates: start: 19940101
  2. INSULATARD HM PENFILL [Suspect]
     Indication: DIABETES MELLITUS
     Dosage: 12 IU, QD
     Route: 058
     Dates: start: 20080809
  3. FOLIC PLUS [Concomitant]
     Dosage: 1X1
     Route: 048
     Dates: start: 20080805

REACTIONS (2)
  - INTRA-UTERINE DEATH [None]
  - PREGNANCY [None]
